FAERS Safety Report 23574363 (Version 1)
Quarter: 2024Q1

REPORT INFORMATION
  Report Type: Spontaneous
  Country: FR (occurrence: FR)
  Receive Date: 20240228
  Receipt Date: 20240228
  Transmission Date: 20240409
  Serious: Yes (Other)
  Sender: FDA-Public Use
  Company Number: FR-AFSSAPS-PP2024000116

PATIENT
  Age: 43 Year
  Sex: Female
  Weight: 64.5 kg

DRUGS (5)
  1. HYDROCORTISONE [Suspect]
     Active Substance: HYDROCORTISONE
     Indication: Product substitution
     Dosage: UNK
     Route: 048
     Dates: start: 20230401, end: 20231117
  2. PREDNISOLONE [Suspect]
     Active Substance: PREDNISOLONE
     Indication: Graft versus host disease in skin
     Dosage: 1 MILLIGRAM/KILOGRAM, ONCE A DAY
     Route: 048
     Dates: start: 20230221, end: 20230519
  3. ENTOCORT [Suspect]
     Active Substance: BUDESONIDE
     Indication: Graft versus host disease in skin
     Dosage: UNK
     Route: 048
     Dates: start: 20230516, end: 20230803
  4. PROTOPIC [Concomitant]
     Active Substance: TACROLIMUS
     Indication: Graft versus host disease in skin
     Dosage: UNK
     Route: 003
     Dates: start: 20230516, end: 20230803
  5. ENTOCORT [Concomitant]
     Active Substance: BUDESONIDE
     Indication: Acute myeloid leukaemia
     Dosage: UNK
     Route: 048
     Dates: start: 20230207

REACTIONS (1)
  - Osteonecrosis [Not Recovered/Not Resolved]

NARRATIVE: CASE EVENT DATE: 20230701
